FAERS Safety Report 17215284 (Version 5)
Quarter: 2020Q3

REPORT INFORMATION
  Report Type: Report from Study
  Country: US (occurrence: US)
  Receive Date: 20191230
  Receipt Date: 20200824
  Transmission Date: 20201102
  Serious: Yes (Other)
  Sender: FDA-Public Use
  Company Number: US-CLOVIS ONCOLOGY-CLO-2019-002585

PATIENT
  Age: 56 Year
  Sex: Female

DRUGS (2)
  1. RUBRACA [Suspect]
     Active Substance: RUCAPARIB CAMSYLATE
     Dosage: 600 MG, BID
     Route: 048
     Dates: end: 20200817
  2. RUBRACA [Suspect]
     Active Substance: RUCAPARIB CAMSYLATE
     Indication: FALLOPIAN TUBE CANCER
     Dosage: 600 MG, BID
     Route: 048
     Dates: start: 20191128

REACTIONS (11)
  - Malignant neoplasm progression [Unknown]
  - Micturition urgency [Recovered/Resolved]
  - Abdominal discomfort [Recovered/Resolved]
  - Thirst [Not Recovered/Not Resolved]
  - Product dose omission issue [Unknown]
  - Retroperitoneal neoplasm [Not Recovered/Not Resolved]
  - Carbohydrate antigen 125 increased [Unknown]
  - Nervousness [Unknown]
  - Illness [Recovered/Resolved]
  - Gastroenteritis viral [Recovered/Resolved]
  - Sunburn [Unknown]

NARRATIVE: CASE EVENT DATE: 201911
